FAERS Safety Report 5209852-9 (Version None)
Quarter: 2006Q4

REPORT INFORMATION
  Report Type: 
  Country: None (occurrence: None)
  Receive Date: 20061130
  Receipt Date: 20060713
  Transmission Date: 20070319
  Serious: Yes (Other)
  Sender: FDA-Public Use
  Company Number: 2006079031

PATIENT

DRUGS (1)
  1. ZYVOX [Suspect]
     Indication: OSTEOMYELITIS
     Dosage: 1200 MG (600 MG, 1 IN 1 12 HR), INTRAVENOUS
     Route: 042
     Dates: start: 20060601, end: 20060601

REACTIONS (1)
  - HAEMOGLOBIN DECREASED [None]
